FAERS Safety Report 18182001 (Version 4)
Quarter: 2020Q4

REPORT INFORMATION
  Report Type: Spontaneous
  Country: PL (occurrence: PL)
  Receive Date: 20200821
  Receipt Date: 20201201
  Transmission Date: 20210113
  Serious: Yes (Life-Threatening, Hospitalization, Other)
  Sender: FDA-Public Use
  Company Number: NVSC2020PL226545

PATIENT
  Age: 28 Year
  Sex: Male

DRUGS (2)
  1. AMOXICILLIN SODIUM,POTASSIUM CLAVULANATE [Suspect]
     Active Substance: AMOXICILLIN\CLAVULANATE POTASSIUM
     Indication: PANCREATITIS ACUTE
  2. AMOXICILLIN SODIUM,POTASSIUM CLAVULANATE [Suspect]
     Active Substance: AMOXICILLIN\CLAVULANATE POTASSIUM
     Indication: ANTIBIOTIC THERAPY
     Dosage: UNK
     Route: 065

REACTIONS (12)
  - Systemic inflammatory response syndrome [Recovering/Resolving]
  - Respiratory failure [Recovering/Resolving]
  - Nervous system disorder [Unknown]
  - Gastroenteritis [Unknown]
  - Clostridium difficile infection [Recovering/Resolving]
  - Ileus paralytic [Recovering/Resolving]
  - Megacolon [Recovering/Resolving]
  - Acute kidney injury [Recovering/Resolving]
  - Escherichia infection [Recovering/Resolving]
  - Cardio-respiratory distress [Unknown]
  - Product use in unapproved indication [Unknown]
  - Septic shock [Recovering/Resolving]
